FAERS Safety Report 4546907-6 (Version None)
Quarter: 2005Q1

REPORT INFORMATION
  Report Type: 
  Country: None (occurrence: None)
  Receive Date: 20050105
  Receipt Date: 20041216
  Transmission Date: 20050727
  Serious: Yes (Hospitalization)
  Sender: FDA-Public Use
  Company Number: JP_041105265

PATIENT
  Age: 74 Year
  Sex: Male
  Weight: 45 kg

DRUGS (8)
  1. VANCOMYCIN [Suspect]
     Indication: SPONDYLITIS
     Dosage: 1000 MG/1 DAY
     Dates: start: 20030820, end: 20030915
  2. VANCOMYCIN [Suspect]
     Indication: STAPHYLOCOCCAL INFECTION
     Dosage: 1000 MG/1 DAY
     Dates: start: 20030820, end: 20030915
  3. VOLTAREN [Concomitant]
  4. FAMOTIDINE [Concomitant]
  5. RHYTHMY (RILMAZAFONE) [Concomitant]
  6. MEXITIL [Concomitant]
  7. MAGLAX (MAGNESIUM OXIDE) [Concomitant]
  8. HALCION [Concomitant]

REACTIONS (7)
  - CHILLS [None]
  - DISEASE RECURRENCE [None]
  - GENERALISED ERYTHEMA [None]
  - PYREXIA [None]
  - SPONDYLITIS [None]
  - STAPHYLOCOCCAL INFECTION [None]
  - TOXIC SKIN ERUPTION [None]
